FAERS Safety Report 8896888 (Version 1)
Quarter: 2012Q4

REPORT INFORMATION
  Report Type: Spontaneous
  Country: TR (occurrence: None)
  Receive Date: 20121106
  Receipt Date: 20121106
  Transmission Date: 20130627
  Serious: Yes (Other)
  Sender: FDA-Public Use
  Company Number: DSA_60467_2012

PATIENT

DRUGS (4)
  1. FLUOROURACIL (FLUOROURACIL) [Suspect]
     Indication: GASTRIC CANCER
     Dosage: as 2-hour infusion on day 1, every other week
  2. FLUOROURACIL (FLUOROURACIL) [Suspect]
     Indication: GASTRIC CANCER
     Dosage: as 46-hour continuous intravenous infusion, every two weeks
     Route: 042
  3. IRINOTECAN [Suspect]
     Dosage: as 2-hour infusion on day 1, every other week
  4. LEUCOVORIN [Suspect]
     Dosage: as 2-hour infusion, every other week

REACTIONS (2)
  - Diarrhoea [None]
  - Stomatitis [None]
